FAERS Safety Report 5815311-2 (Version None)
Quarter: 2008Q3

REPORT INFORMATION
  Report Type: 
  Country: None (occurrence: None)
  Receive Date: 20080718
  Receipt Date: 20080707
  Transmission Date: 20090109
  Serious: Yes (Hospitalization, Other)
  Sender: FDA-Public Use
  Company Number: US-PFIZER INC-2006022665

PATIENT
  Sex: Female
  Weight: 77.1 kg

DRUGS (21)
  1. NEURONTIN [Suspect]
     Indication: NEURALGIA
     Route: 065
     Dates: start: 20060127, end: 20060201
  2. NEURONTIN [Suspect]
     Indication: FIBROMYALGIA
  3. NEURONTIN [Suspect]
     Indication: INTERVERTEBRAL DISC DEGENERATION
  4. NEURONTIN [Suspect]
     Indication: OSTEOARTHRITIS
  5. LYRICA [Suspect]
     Indication: NEUROPATHY PERIPHERAL
     Dates: start: 20060101, end: 20071025
  6. LYRICA [Suspect]
     Indication: FIBROMYALGIA
  7. OXYCODONE HCL [Concomitant]
  8. DEMEROL [Concomitant]
     Route: 065
  9. REMERON [Concomitant]
     Route: 065
  10. LEVOXYL [Concomitant]
     Route: 065
  11. SOMA [Concomitant]
     Route: 065
  12. KLOR-CON [Concomitant]
     Route: 065
  13. AMITRIPTYLINE HCL [Concomitant]
     Route: 065
  14. DIAZEPAM [Concomitant]
     Route: 065
  15. VALSARTAN [Concomitant]
     Route: 065
  16. PROTONIX [Concomitant]
     Route: 065
  17. ATENOLOL [Concomitant]
     Route: 065
  18. LASIX [Concomitant]
     Route: 065
  19. GUAIFENESIN [Concomitant]
     Route: 065
  20. FENTANYL [Concomitant]
     Route: 062
  21. METHADONE HCL [Concomitant]
     Route: 065

REACTIONS (14)
  - ABASIA [None]
  - AMNESIA [None]
  - BALANCE DISORDER [None]
  - BLOOD GLUCOSE INCREASED [None]
  - BLOOD PRESSURE INCREASED [None]
  - DIZZINESS [None]
  - DYSARTHRIA [None]
  - FALL [None]
  - FRACTURE [None]
  - HALLUCINATION [None]
  - HEART RATE INCREASED [None]
  - SOMNOLENCE [None]
  - WALKING AID USER [None]
  - WEIGHT INCREASED [None]
